FAERS Safety Report 6752106-X (Version None)
Quarter: 2010Q2

REPORT INFORMATION
  Report Type: 
  Country: None (occurrence: None)
  Receive Date: 20100602
  Receipt Date: 20080610
  Transmission Date: 20101027
  Serious: Yes (Hospitalization)
  Sender: FDA-Public Use
  Company Number: GB-ROCHE-569251

PATIENT
  Sex: Female
  Weight: 51 kg

DRUGS (12)
  1. BEVACIZUMAB [Suspect]
     Route: 042
     Dates: start: 20080418
  2. CARBOPLATIN [Suspect]
     Dosage: AREA UNDER CURVE GIVEN OVER 30-60 MINUTES.
     Route: 042
     Dates: start: 20080418
  3. PACLITAXEL [Suspect]
     Route: 042
     Dates: start: 20080418
  4. BENDROFLUAZIDE [Concomitant]
     Route: 048
     Dates: start: 20030905
  5. METOCLOPRAMIDE [Concomitant]
     Route: 048
     Dates: start: 20080418
  6. LANSOPRAZOLE [Concomitant]
     Route: 048
     Dates: start: 20080418
  7. ASPIRIN [Concomitant]
     Route: 048
     Dates: start: 20030905
  8. SENNA [Concomitant]
     Route: 048
     Dates: start: 20080418
  9. DEXAMETHASONE [Concomitant]
     Dosage: DAILY DOSE REPROTEDA AS 6.
     Route: 048
     Dates: start: 20080418
  10. CALCICHEW [Concomitant]
     Route: 048
     Dates: start: 20030905
  11. ATORVASTATIN [Concomitant]
     Route: 048
     Dates: start: 20030905
  12. CITALOPRAM [Concomitant]
     Route: 048
     Dates: start: 20030905

REACTIONS (1)
  - CONFUSIONAL STATE [None]
